FAERS Safety Report 16943014 (Version 2)
Quarter: 2019Q4

REPORT INFORMATION
  Report Type: Report from Study
  Country: AU (occurrence: AU)
  Receive Date: 20191021
  Receipt Date: 20191224
  Transmission Date: 20200122
  Serious: Yes (Hospitalization)
  Sender: FDA-Public Use
  Company Number: NVSC2019AU011634

PATIENT
  Age: 59 Year
  Sex: Female

DRUGS (1)
  1. COSENTYX [Suspect]
     Active Substance: SECUKINUMAB
     Indication: PSORIATIC ARTHROPATHY
     Dosage: UNK UNK, QMO
     Route: 058
     Dates: start: 201906, end: 201907

REACTIONS (2)
  - Fibula fracture [Recovered/Resolved with Sequelae]
  - Tibia fracture [Recovered/Resolved with Sequelae]

NARRATIVE: CASE EVENT DATE: 20190727
